FAERS Safety Report 6341975-3 (Version None)
Quarter: 2009Q3

REPORT INFORMATION
  Report Type: 
  Country: None (occurrence: None)
  Receive Date: 20090904
  Receipt Date: 20090825
  Transmission Date: 20100115
  Serious: Yes (Death, Other)
  Sender: FDA-Public Use
  Company Number: US-GENENTECH-289659

PATIENT

DRUGS (3)
  1. AVASTIN [Suspect]
     Indication: RECTAL CANCER
     Route: 065
  2. FLUOROURACIL [Suspect]
     Indication: RECTAL CANCER
     Dosage: 225 MG/M2, QD
     Route: 065
  3. CAPECITABINE [Suspect]
     Indication: RECTAL CANCER
     Dosage: UNK
     Route: 065

REACTIONS (23)
  - ANASTOMOTIC LEAK [None]
  - COLITIS [None]
  - CONSTIPATION [None]
  - DECREASED APPETITE [None]
  - DEHYDRATION [None]
  - DIARRHOEA [None]
  - HYPERTENSION [None]
  - ILEAL PERFORATION [None]
  - ILEUS [None]
  - IMPAIRED HEALING [None]
  - MUCOSAL INFLAMMATION [None]
  - NEOPLASM MALIGNANT [None]
  - NERVOUS SYSTEM DISORDER [None]
  - NEUROGENIC BLADDER [None]
  - PALMAR-PLANTAR ERYTHRODYSAESTHESIA SYNDROME [None]
  - PELVIC ABSCESS [None]
  - PELVIC HAEMATOMA [None]
  - PERIRECTAL ABSCESS [None]
  - PULMONARY EMBOLISM [None]
  - RADIATION SKIN INJURY [None]
  - VAGINAL LACERATION [None]
  - WOUND DEHISCENCE [None]
  - WOUND INFECTION [None]
